FAERS Safety Report 18096277 (Version 3)
Quarter: 2020Q3

REPORT INFORMATION
  Report Type: Report from Study
  Country: DE (occurrence: DE)
  Receive Date: 20200730
  Receipt Date: 20200817
  Transmission Date: 20201103
  Serious: Yes (Hospitalization, Other)
  Sender: FDA-Public Use
  Company Number: DE-ASTRAZENECA-2020SE92039

PATIENT
  Sex: Female
  Weight: 67.8 kg

DRUGS (3)
  1. LETROZOL HEUMANN [Concomitant]
     Active Substance: LETROZOLE
     Indication: BREAST CANCER METASTATIC
     Dosage: 2.5 MG, QD (1?0?0)
     Route: 048
     Dates: start: 20180302
  2. FULVESTRANT. [Suspect]
     Active Substance: FULVESTRANT
     Indication: BREAST CANCER METASTATIC
     Dosage: 500 MG, Q4W (DAILY DOSE)
     Route: 030
     Dates: end: 20200619
  3. KISQALI [Suspect]
     Active Substance: RIBOCICLIB
     Indication: BREAST CANCER METASTATIC
     Dosage: 600 MG, QD (200 MGX3) (3?0?0)
     Route: 048
     Dates: start: 20180302, end: 20200511

REACTIONS (12)
  - Cutis laxa [Recovered/Resolved]
  - Pleural effusion [Recovered/Resolved]
  - Fatigue [Recovered/Resolved]
  - Concomitant disease aggravated [Recovered/Resolved]
  - Basal cell carcinoma [Recovered/Resolved]
  - Blood pressure increased [Recovered/Resolved]
  - Vision blurred [Recovered/Resolved]
  - Actinic elastosis [Recovered/Resolved]
  - Flank pain [Not Recovered/Not Resolved]
  - Hypokalaemia [Recovered/Resolved]
  - Diarrhoea [Not Recovered/Not Resolved]
  - Cerebral ischaemia [Recovered/Resolved]

NARRATIVE: CASE EVENT DATE: 20180319
